FAERS Safety Report 18191887 (Version 8)
Quarter: 2023Q2

REPORT INFORMATION
  Report Type: Spontaneous
  Country: PK (occurrence: PK)
  Receive Date: 20200825
  Receipt Date: 20230531
  Transmission Date: 20230721
  Serious: Yes (Other)
  Sender: FDA-Public Use
  Company Number: PK-PFIZER INC-2020002038

PATIENT
  Age: 48 Year
  Sex: Male
  Weight: 78 kg

DRUGS (15)
  1. ENBREL [Suspect]
     Active Substance: ETANERCEPT
     Indication: Ankylosing spondylitis
     Dosage: 50 MG, EVERY 3 WEEKS
     Route: 065
     Dates: start: 2010
  2. ENBREL [Suspect]
     Active Substance: ETANERCEPT
     Indication: Psoriatic arthropathy
     Dosage: 50 MG, MONTHLY
     Route: 058
  3. ENBREL [Suspect]
     Active Substance: ETANERCEPT
     Dosage: 50 MG, AFTER EVERY 3 WEEKS
     Route: 058
  4. ENBREL [Suspect]
     Active Substance: ETANERCEPT
     Dosage: 50 MG, WEEKLY (EVERY WEEK NEXT 2 MONTHS)
     Route: 065
  5. ENBREL [Suspect]
     Active Substance: ETANERCEPT
     Dosage: 50 MG, WEEKLY
     Route: 058
     Dates: start: 202101
  6. ENBREL [Suspect]
     Active Substance: ETANERCEPT
     Dosage: 50 MG, EVERY 2 WEEKS FOR 6 MONTHS
     Route: 065
  7. ENBREL [Suspect]
     Active Substance: ETANERCEPT
     Dosage: 50 MG EVERY 2 WEEKS
     Route: 058
     Dates: start: 20220707
  8. ARCOX [Concomitant]
     Dosage: 60 MG, 1X/DAY (AFTER MEAL) FOR ONE MONTH, THEN AS NEEDED.
  9. COSENTYX [Concomitant]
     Active Substance: SECUKINUMAB
     Dosage: 150 MILLIGRAM
     Route: 058
     Dates: start: 201903
  10. DOLGINA [PARACETAMOL;TRAMADOL HYDROCHLORIDE] [Concomitant]
     Dosage: 1 DF, 1X/DAY (TAKE 1 TABLET ONCE A DAY)
  11. Sunny d [Concomitant]
     Dosage: 1 DF, MONTHLY FOR 4 MONTHS
  12. PANADOL [Concomitant]
     Active Substance: ACETAMINOPHEN
     Indication: Pain
     Dosage: 1000 MG, 1X/DAY (2 X TABLET, ONCE A DAY, AFTER MEAL, WHEN REQUIRED AS NEEDED)
  13. NUBEROL [Concomitant]
     Dosage: 1+0+1+0, AFTER MEAL (1+1 IN MORNING AND EVENING AFTER MEAL)
  14. DICLOFENAC SODIUM [Concomitant]
     Active Substance: DICLOFENAC SODIUM
     Dosage: UNK, 3X/DAY
  15. DEPO-MEDROL [Concomitant]
     Active Substance: METHYLPREDNISOLONE ACETATE
     Dosage: 1 X INJ, STAT FOR 1 DAYS FOR 1 DAY

REACTIONS (20)
  - Iridocyclitis [Unknown]
  - Diabetes mellitus [Unknown]
  - Ankylosing spondylitis [Unknown]
  - Renal failure [Unknown]
  - Neck pain [Unknown]
  - Back pain [Unknown]
  - Musculoskeletal stiffness [Unknown]
  - Blood triglycerides abnormal [Unknown]
  - Blood triglycerides increased [Unknown]
  - High density lipoprotein decreased [Unknown]
  - Very low density lipoprotein increased [Unknown]
  - Blood uric acid decreased [Unknown]
  - Platelet count increased [Unknown]
  - Rotator cuff syndrome [Unknown]
  - Off label use [Unknown]
  - Arthralgia [Unknown]
  - Hypertension [Unknown]
  - Dry mouth [Unknown]
  - Pyrexia [Unknown]
  - Psoriasis [Unknown]

NARRATIVE: CASE EVENT DATE: 20100101
